FAERS Safety Report 15866261 (Version 3)
Quarter: 2019Q2

REPORT INFORMATION
  Report Type: Spontaneous
  Country: US (occurrence: US)
  Receive Date: 20190125
  Receipt Date: 20190425
  Transmission Date: 20190711
  Serious: No
  Sender: FDA-Public Use
  Company Number: US-PFIZER INC-2019033604

PATIENT
  Age: 20 Year
  Sex: Female

DRUGS (2)
  1. GENOTROPIN [Suspect]
     Active Substance: SOMATROPIN
     Indication: GROWTH HORMONE DEFICIENCY
     Dosage: 1.6 MG, UNK (1.6MG, 3 DAYS A WEEK)
     Dates: start: 20090403
  2. GENOTROPIN [Suspect]
     Active Substance: SOMATROPIN
     Dosage: 1.6 MG, UNK (THREE TIMES A WEEK, MONDAY , WED, FRI)

REACTIONS (2)
  - Product dose omission [Not Recovered/Not Resolved]
  - Insulin-like growth factor decreased [Unknown]

NARRATIVE: CASE EVENT DATE: 20181227
